FAERS Safety Report 22641682 (Version 4)
Quarter: 2023Q4

REPORT INFORMATION
  Report Type: Spontaneous
  Country: US (occurrence: US)
  Receive Date: 20230626
  Receipt Date: 20231206
  Transmission Date: 20240110
  Serious: Yes (Other)
  Sender: FDA-Public Use
  Company Number: US-BRISTOL-MYERS SQUIBB COMPANY-2023-088999

PATIENT
  Age: 61 Year
  Sex: Female

DRUGS (2)
  1. POMALYST [Suspect]
     Active Substance: POMALIDOMIDE
     Indication: Plasma cell myeloma
     Dosage: DAILY QD, FREQUENCY-CYCLIC
     Route: 048
     Dates: start: 202101
  2. POMALYST [Suspect]
     Active Substance: POMALIDOMIDE
     Dosage: FREQUENCY: DAILY FOR 21 DAYS, THEN 7 DAYS OFF
     Route: 048

REACTIONS (4)
  - Squamous cell carcinoma of skin [Unknown]
  - Oropharyngeal pain [Unknown]
  - Cough [Unknown]
  - Basal cell carcinoma [Unknown]

NARRATIVE: CASE EVENT DATE: 20230609
